FAERS Safety Report 8367060-7 (Version None)
Quarter: 2012Q2

REPORT INFORMATION
  Report Type: 
  Country: None (occurrence: None)
  Receive Date: 20120517
  Receipt Date: 20120502
  Transmission Date: 20120825
  Serious: Yes (Death, Life-Threatening, Hospitalization, Other)
  Sender: FDA-Public Use
  Company Number: DK-ELI_LILLY_AND_COMPANY-DK201203008491

PATIENT
  Sex: Female
  Weight: 80 kg

DRUGS (4)
  1. EFFIENT [Suspect]
     Indication: ANGINA PECTORIS
     Dosage: 60 MG, LOADING DOSE
  2. ASPIRIN [Concomitant]
     Dosage: 300-500 MG, LOADING DOSE
  3. EFFIENT [Suspect]
     Dosage: 10 MG, QD, MAINTENANCE DOSE
     Dates: start: 20100615
  4. ASPIRIN [Concomitant]
     Dosage: 100 MG, QD, MAINTENANCE DOSE

REACTIONS (4)
  - CARDIAC ARREST [None]
  - CARDIAC FAILURE [None]
  - ACUTE MYOCARDIAL INFARCTION [None]
  - ELECTROLYTE IMBALANCE [None]
